FAERS Safety Report 4749554-6 (Version None)
Quarter: 2005Q3

REPORT INFORMATION
  Report Type: 
  Country: None (occurrence: None)
  Receive Date: 20050822
  Receipt Date: 20050810
  Transmission Date: 20060218
  Serious: Yes (Hospitalization)
  Sender: FDA-Public Use
  Company Number: US-JNJFOC-20050603619

PATIENT
  Age: 72 Year
  Sex: Male
  Weight: 75 kg

DRUGS (4)
  1. DOXIL [Suspect]
     Dosage: 56 MG (30MG/M2) CYCLE 7, DAY 4 EVERY 21 DAYS-THIS IS A REDUCED DOSE FOR CYCLE 7 DUE TO WEIGHT LOSS.
     Route: 042
  2. DOXIL [Suspect]
     Indication: MULTIPLE MYELOMA
     Route: 042
  3. VELCADE [Suspect]
     Dosage: 7.6MG(1.3 MG/M2,CYCLE 7 DAYS 1,4,8 + 11) EVERY 21 DAYS-REDUCED DOSE ON CYCLE 7 DUE TO WT LOSS.
     Route: 042
  4. VELCADE [Suspect]
     Indication: MULTIPLE MYELOMA
     Dosage: 1.3 MG/M2 ON DAYS 1, 4, 8 AND 11 EVERY 21 DAYS.
     Route: 042

REACTIONS (6)
  - ATRIOVENTRICULAR BLOCK SECOND DEGREE [None]
  - DEHYDRATION [None]
  - HYPOTENSION [None]
  - NAUSEA [None]
  - SCROTAL ABSCESS [None]
  - VOMITING [None]
